FAERS Safety Report 9229843 (Version 1)
Quarter: 2013Q2

REPORT INFORMATION
  Report Type: Spontaneous
  Country: US (occurrence: US)
  Receive Date: 20130415
  Receipt Date: 20130415
  Transmission Date: 20140414
  Serious: No
  Sender: FDA-Public Use
  Company Number: US-009507513-1304USA006331

PATIENT
  Age: 55 Year
  Sex: Female

DRUGS (3)
  1. NASONEX [Suspect]
     Dosage: QD, IN THE MORNING
     Route: 055
  2. FLUTICASONE [Concomitant]
     Dosage: UNK, QD, EVENING
  3. FLUTICASONE [Concomitant]
     Dosage: UNK, BID

REACTIONS (3)
  - Drug dose omission [Unknown]
  - Product quality issue [Unknown]
  - No adverse event [Unknown]
